FAERS Safety Report 7392143-8 (Version None)
Quarter: 2011Q2

REPORT INFORMATION
  Report Type: 
  Country: None (occurrence: None)
  Receive Date: 20110404
  Receipt Date: 20110328
  Transmission Date: 20111010
  Serious: Yes (Other)
  Sender: FDA-Public Use
  Company Number: A0916454A

PATIENT
  Age: 20 Year
  Sex: Male
  Weight: 73.2 kg

DRUGS (5)
  1. ALBUTEROL [Concomitant]
  2. ADVAIR DISKUS 100/50 [Suspect]
     Indication: ASTHMA
     Dosage: 1PUFF TWICE PER DAY
     Route: 055
     Dates: start: 20100305, end: 20100323
  3. SINGULAIR [Concomitant]
  4. AZITHROMYCIN [Concomitant]
  5. FLONASE [Concomitant]

REACTIONS (1)
  - ASTHMA [None]
